FAERS Safety Report 23705537 (Version 1)
Quarter: 2024Q2

REPORT INFORMATION
  Report Type: Spontaneous
  Country: US (occurrence: US)
  Receive Date: 20240404
  Receipt Date: 20240404
  Transmission Date: 20240715
  Serious: Yes (Hospitalization, Other)
  Sender: FDA-Public Use
  Company Number: US-SUN PHARMACEUTICAL INDUSTRIES LTD-2024R1-439509

PATIENT
  Sex: Female

DRUGS (3)
  1. PROPRANOLOL [Suspect]
     Active Substance: PROPRANOLOL HYDROCHLORIDE
     Indication: Hyperthyroidism
     Dosage: 20 MILLIGRAM, DAILY
     Route: 064
  2. METHIMAZOLE [Suspect]
     Active Substance: METHIMAZOLE
     Indication: Hyperthyroidism
     Dosage: UNK
     Route: 064
  3. METHIMAZOLE [Suspect]
     Active Substance: METHIMAZOLE
     Dosage: 0.5 MILLIGRAM/KILOGRAM, DAILY
     Route: 065

REACTIONS (8)
  - Foetal exposure during pregnancy [Unknown]
  - Foetal heart rate deceleration abnormality [Unknown]
  - Sinus tachycardia [Unknown]
  - Graves^ disease [Unknown]
  - Premature baby [Unknown]
  - Low birth weight baby [Unknown]
  - Tachycardia [Unknown]
  - Hypoglycaemia [Recovered/Resolved]
